FAERS Safety Report 4642423-1 (Version None)
Quarter: 2005Q2

REPORT INFORMATION
  Report Type: 
  Country: None (occurrence: None)
  Receive Date: 20050422
  Receipt Date: 20040602
  Transmission Date: 20051028
  Serious: Yes (Disabling)
  Sender: FDA-Public Use
  Company Number: ES-ROCHE-370507

PATIENT
  Age: 59 Year
  Sex: Female

DRUGS (5)
  1. PEG-INTERFERON ALFA 2A (RO 25-8310) [Suspect]
     Route: 058
     Dates: start: 20040308, end: 20040601
  2. RIBAVIRIN [Suspect]
     Route: 048
     Dates: start: 20040308, end: 20040601
  3. CLEMASTINE [Concomitant]
     Dates: start: 20040405, end: 20040405
  4. ALPRAZOLAM [Concomitant]
     Dates: start: 20040322, end: 20040322
  5. PREDNISONE [Concomitant]
     Dates: start: 20020602, end: 20040604

REACTIONS (4)
  - FACIAL PALSY [None]
  - MONONEUROPATHY MULTIPLEX [None]
  - MUSCULAR WEAKNESS [None]
  - REFUSAL OF TREATMENT BY PATIENT [None]
